FAERS Safety Report 7073011-8 (Version None)
Quarter: 2010Q4

REPORT INFORMATION
  Report Type: 
  Country: None (occurrence: None)
  Receive Date: 20101029
  Receipt Date: 20100407
  Transmission Date: 20110411
  Serious: No
  Sender: FDA-Public Use
  Company Number: A0854286A

PATIENT
  Sex: Female

DRUGS (1)
  1. ADVAIR DISKUS 100/50 [Suspect]
     Indication: PRODUCT USED FOR UNKNOWN INDICATION
     Route: 065

REACTIONS (5)
  - ASTHENIA [None]
  - FEELING COLD [None]
  - ILL-DEFINED DISORDER [None]
  - MALAISE [None]
  - NAUSEA [None]
